FAERS Safety Report 11346083 (Version 1)
Quarter: 2015Q3

REPORT INFORMATION
  Report Type: Spontaneous
  Country: US (occurrence: US)
  Receive Date: 20150806
  Receipt Date: 20150806
  Transmission Date: 20151125
  Serious: Yes (Other)
  Sender: FDA-Public Use
  Company Number: US-ASTRAZENECA-2015SE70366

PATIENT
  Sex: Female

DRUGS (3)
  1. VENTALIN [Concomitant]
  2. TUDORZA PRESSAIR [Suspect]
     Active Substance: ACLIDINIUM BROMIDE
     Dosage: ACTAVIS, 400 MCG, 1 PUFF TWO TIMES A DAY
     Route: 055
  3. RIO [Concomitant]

REACTIONS (6)
  - Haemorrhagic stroke [Unknown]
  - Depression [Unknown]
  - Malaise [Unknown]
  - Product quality issue [Unknown]
  - Dyspnoea [Unknown]
  - Chronic obstructive pulmonary disease [Unknown]
